FAERS Safety Report 7768974-9 (Version None)
Quarter: 2011Q3

REPORT INFORMATION
  Report Type: 
  Country: None (occurrence: None)
  Receive Date: 20110922
  Receipt Date: 20101104
  Transmission Date: 20111222
  Serious: Yes (Hospitalization)
  Sender: FDA-Public Use
  Company Number: US-ASTRAZENECA-2010SE52401

PATIENT
  Age: 42 Year
  Sex: Male
  Weight: 136 kg

DRUGS (8)
  1. SEROQUEL [Suspect]
     Indication: BIPOLAR DISORDER
     Route: 048
  2. SEROQUEL [Suspect]
     Route: 048
     Dates: start: 20100901
  3. AMBIEN [Concomitant]
  4. SEROQUEL [Suspect]
     Route: 048
     Dates: start: 20101101
  5. SEROQUEL [Suspect]
     Route: 048
     Dates: start: 20100901
  6. VALIUM [Concomitant]
  7. SEROQUEL [Suspect]
     Indication: SLEEP DISORDER
     Route: 048
  8. SEROQUEL [Suspect]
     Route: 048
     Dates: start: 20101101

REACTIONS (2)
  - MANIA [None]
  - DIABETES MELLITUS [None]
